FAERS Safety Report 16881666 (Version 1)
Quarter: 2019Q4

REPORT INFORMATION
  Report Type: Spontaneous
  Country: US (occurrence: US)
  Receive Date: 20190808
  Receipt Date: 20190808
  Transmission Date: 20200122
  Serious: Yes (Hospitalization)
  Sender: FDA-Public Use
  Company Number: None

PATIENT
  Age: 32 Year
  Sex: Female
  Weight: 55.61 kg

DRUGS (2)
  1. SUMATRIPTAN. [Suspect]
     Active Substance: SUMATRIPTAN
     Indication: SCHIZOPHRENIA
     Route: 048
     Dates: start: 20190531, end: 20190531
  2. BUSPIRONE [Suspect]
     Active Substance: BUSPIRONE HYDROCHLORIDE
     Route: 048
     Dates: start: 20190530, end: 20190605

REACTIONS (7)
  - Abdominal pain upper [None]
  - Headache [None]
  - Nausea [None]
  - Agitation [None]
  - Paranoia [None]
  - Hallucination [None]
  - Malaise [None]

NARRATIVE: CASE EVENT DATE: 20190601
